FAERS Safety Report 7656934-8 (Version None)
Quarter: 2011Q3

REPORT INFORMATION
  Report Type: 
  Country: None (occurrence: None)
  Receive Date: 20110804
  Receipt Date: 20110802
  Transmission Date: 20111222
  Serious: Yes (Hospitalization, Other)
  Sender: FDA-Public Use
  Company Number: IT-PFIZER INC-2011149394

PATIENT
  Age: 76 Year
  Sex: Female

DRUGS (3)
  1. BISOPROLOL FUMARATE [Suspect]
     Indication: VASCULAR GRAFT
     Dosage: 1.25 MG, 1X/DAY
     Route: 048
     Dates: start: 20100401, end: 20100528
  2. ATORVASTATIN CALCIUM [Suspect]
     Indication: VASCULAR GRAFT
     Dosage: 10 MG, 1X/DAY
     Route: 048
     Dates: start: 20100401, end: 20100528
  3. PLAVIX [Suspect]
     Indication: VASCULAR GRAFT
     Dosage: 75 MG, 1X/DAY
     Route: 048
     Dates: start: 20100401

REACTIONS (2)
  - GAMMA-GLUTAMYLTRANSFERASE INCREASED [None]
  - HYPERTRANSAMINASAEMIA [None]
